FAERS Safety Report 8043423-4 (Version None)
Quarter: 2012Q1

REPORT INFORMATION
  Report Type: 
  Country: None (occurrence: None)
  Receive Date: 20120112
  Receipt Date: 20120106
  Transmission Date: 20120608
  Serious: Yes (Other)
  Sender: FDA-Public Use
  Company Number: PHHY2012GB001272

PATIENT
  Age: 74 Year
  Sex: Female

DRUGS (2)
  1. METFORMIN HYDROCHLORIDE [Suspect]
     Indication: TYPE 2 DIABETES MELLITUS
  2. SAXAGLIPTIN [Suspect]
     Dates: start: 20100901

REACTIONS (1)
  - TUBULOINTERSTITIAL NEPHRITIS [None]
